FAERS Safety Report 7900474-5 (Version None)
Quarter: 2011Q4

REPORT INFORMATION
  Report Type: 
  Country: None (occurrence: None)
  Receive Date: 20111108
  Receipt Date: 20111031
  Transmission Date: 20120403
  Serious: No
  Sender: FDA-Public Use
  Company Number: US-PFIZER INC-K201100894

PATIENT
  Sex: Female
  Weight: 56.6 kg

DRUGS (4)
  1. FLECTOR [Suspect]
     Indication: ARTHRALGIA
     Dosage: 1 PATCH, Q12H
     Route: 061
     Dates: start: 20110722, end: 20110801
  2. FLECTOR [Suspect]
     Dosage: UNK
     Dates: start: 20110722, end: 20110801
  3. IBUPROFEN (ADVIL) [Concomitant]
     Dosage: UNK
  4. MINOCYCLINE [Concomitant]
     Indication: ACNE
     Dosage: UNK

REACTIONS (1)
  - DRUG INEFFECTIVE [None]
